FAERS Safety Report 4349709-9 (Version None)
Quarter: 2004Q2

REPORT INFORMATION
  Report Type: 
  Country: None (occurrence: None)
  Receive Date: 20040426
  Receipt Date: 20030805
  Transmission Date: 20050107
  Serious: Yes (Life-Threatening)
  Sender: FDA-Public Use
  Company Number: 2003030293

PATIENT
  Age: 3 Year
  Sex: Female

DRUGS (1)
  1. ZITHROMAX [Suspect]
     Indication: EAR INFECTION
     Dosage: (DAILY), ORAL
     Route: 048
     Dates: start: 20030404, end: 20030406

REACTIONS (2)
  - DRUG INEFFECTIVE [None]
  - ERYTHEMA MULTIFORME [None]
